FAERS Safety Report 6589572-9 (Version None)
Quarter: 2010Q1

REPORT INFORMATION
  Report Type: 
  Country: None (occurrence: None)
  Receive Date: 20100218
  Receipt Date: 20100208
  Transmission Date: 20100710
  Serious: Yes (Hospitalization)
  Sender: FDA-Public Use
  Company Number: KR-GILEAD-E2B_00000565

PATIENT
  Sex: Male
  Weight: 55.7 kg

DRUGS (10)
  1. HEPSERA [Suspect]
     Indication: HEPATITIS B
     Dosage: 10MG PER DAY
     Route: 048
     Dates: start: 20050705
  2. URSODEOXYCHOLIC ACID [Concomitant]
     Dates: start: 20070914
  3. NAPROXEN [Concomitant]
     Dates: start: 20070916, end: 20070919
  4. ISOLEUCINE [Concomitant]
     Dates: start: 20070705
  5. LEUCINE [Concomitant]
     Dates: start: 20070705
  6. VALINE [Concomitant]
     Dates: start: 20070705
  7. MUCOSTA [Concomitant]
     Dates: start: 20070927
  8. GODEX [Concomitant]
     Dates: start: 20070913
  9. HARNAL D [Concomitant]
     Dates: start: 20070917
  10. GANATON [Concomitant]
     Dates: start: 20070508

REACTIONS (1)
  - HEPATIC NEOPLASM MALIGNANT RECURRENT [None]
